APPROVED DRUG PRODUCT: RANOLAZINE
Active Ingredient: RANOLAZINE
Strength: 500MG
Dosage Form/Route: TABLET, EXTENDED RELEASE;ORAL
Application: A212889 | Product #001 | TE Code: AB
Applicant: RISING PHARMA HOLDINGS INC
Approved: Jan 28, 2021 | RLD: No | RS: No | Type: RX